FAERS Safety Report 8718818 (Version 3)
Quarter: 2013Q3

REPORT INFORMATION
  Report Type: Report from Study
  Country: JP (occurrence: JP)
  Receive Date: 20120810
  Receipt Date: 20130726
  Transmission Date: 20140515
  Serious: Yes (Other)
  Sender: FDA-Public Use
  Company Number: JP-VERTEX PHARMACEUTICALS INC.-AE-2012-009736

PATIENT
  Age: 57 Year
  Sex: Female

DRUGS (10)
  1. CLARITIN REDITABS [Concomitant]
     Dosage: 10 MG, QD
     Route: 048
  2. ACECOL [Concomitant]
     Dosage: 2 MG, QD
     Route: 048
  3. LIVALO [Concomitant]
     Dosage: 2 MG, QD
     Route: 048
  4. VX-950 (TELAPREVIR) [Suspect]
     Indication: CHRONIC HEPATITIS C
     Dosage: 1500 MG, QD
     Route: 048
     Dates: start: 20120428, end: 20120717
  5. RIBAVIRIN [Suspect]
     Indication: CHRONIC HEPATITIS C
     Dosage: 800 MG, QD
     Route: 048
     Dates: start: 20120428, end: 20120517
  6. RIBAVIRIN [Suspect]
     Dosage: 400 MG, QD
     Route: 048
     Dates: start: 20120518, end: 20120628
  7. RIBAVIRIN [Suspect]
     Dosage: 600 MG, QD
     Route: 048
     Dates: start: 20120629, end: 20121004
  8. PEGINTERFERON ALFA-2B [Concomitant]
     Indication: HEPATITIS C
     Dosage: 1.5 ?G/KG, QW
     Route: 058
     Dates: start: 20120428, end: 20121004
  9. EPADEL-S [Concomitant]
     Dosage: 1800 MG, QD
     Route: 048
  10. FEROTYM [Concomitant]
     Dosage: 100 MG, QD
     Route: 048

REACTIONS (2)
  - Anaemia [Not Recovered/Not Resolved]
  - Rash [Not Recovered/Not Resolved]
